FAERS Safety Report 17678474 (Version 1)
Quarter: 2020Q2

REPORT INFORMATION
  Report Type: Spontaneous
  Country: US (occurrence: US)
  Receive Date: 20200417
  Receipt Date: 20200417
  Transmission Date: 20200714
  Serious: No
  Sender: FDA-Public Use
  Company Number: US-GLAXOSMITHKLINE-US2020065613

PATIENT
  Age: 76 Year
  Sex: Female

DRUGS (1)
  1. VENTOLIN HFA [Suspect]
     Active Substance: ALBUTEROL SULFATE
     Indication: DYSPNOEA
     Dosage: 2 PUFF(S), 1D
     Route: 055
     Dates: start: 20200414

REACTIONS (2)
  - Expired product administered [Unknown]
  - Epistaxis [Unknown]

NARRATIVE: CASE EVENT DATE: 20200414
